FAERS Safety Report 7610263-7 (Version None)
Quarter: 2011Q3

REPORT INFORMATION
  Report Type: 
  Country: None (occurrence: None)
  Receive Date: 20110706
  Receipt Date: 20110627
  Transmission Date: 20111222
  Serious: Yes (Hospitalization)
  Sender: FDA-Public Use
  Company Number: 1000021818

PATIENT
  Age: 68 Year
  Sex: Female

DRUGS (7)
  1. VALSARTAN (VALSARTAN) (VALSARTAN) [Concomitant]
  2. RISEDRONATE SODIUM (RISEDRONATE SODIUM) (RISEDRONATE SODIUM) [Concomitant]
  3. OMEPRAZOLE [Suspect]
  4. METFORMIN HCL [Concomitant]
  5. NEBIVOLOL HCL [Suspect]
  6. DOXAZOSIN (DOXAZOSIN) (DOXAZOSIN) [Concomitant]
  7. DULOXETIME HYDROCHLORIDE [Suspect]
     Indication: STRESS URINARY INCONTINENCE
     Dosage: 80 MG (40 MG,2 IN 1 D),ORAL
     Route: 048

REACTIONS (8)
  - STRESS CARDIOMYOPATHY [None]
  - DYSKINESIA [None]
  - DRUG INTERACTION [None]
  - DISCOMFORT [None]
  - DYSPNOEA [None]
  - ELECTROCARDIOGRAM ST SEGMENT ELEVATION [None]
  - CHEST PAIN [None]
  - HYPERKINESIA [None]
